FAERS Safety Report 7045102-9 (Version None)
Quarter: 2010Q4

REPORT INFORMATION
  Report Type: 
  Country: None (occurrence: None)
  Receive Date: 20101014
  Receipt Date: 20100322
  Transmission Date: 20110411
  Serious: No
  Sender: FDA-Public Use
  Company Number: US-BRISTOL-MYERS SQUIBB COMPANY-14982821

PATIENT
  Age: 58 Year
  Sex: Female
  Weight: 56 kg

DRUGS (16)
  1. GLUCOPHAGE XR [Suspect]
     Indication: DIABETES MELLITUS
     Dates: start: 20100101
  2. METFORMIN HCL [Suspect]
     Indication: DIABETES MELLITUS
     Dosage: METFORMIN ER INTERRUPTED ON JAN2010
  3. MULTIVITAMINS + IRON [Concomitant]
  4. CALCIUM [Concomitant]
  5. MAGNESIUM [Concomitant]
  6. ZINC [Concomitant]
  7. VITAMIN B-12 [Concomitant]
     Dosage: TABS
  8. POTASSIUM [Concomitant]
  9. FISH OIL [Concomitant]
  10. GARLIC [Concomitant]
  11. METHYLSULFONYLMETHANE [Concomitant]
  12. GYMNEMA SYLVESTRE [Concomitant]
  13. CHONDROITIN SULFATE + GLUCOSAMINE [Concomitant]
  14. ESTRADIOL [Concomitant]
  15. MIRAPEX [Concomitant]
  16. IRON [Concomitant]

REACTIONS (3)
  - ALOPECIA [None]
  - DRUG EFFECT DECREASED [None]
  - FLATULENCE [None]
